FAERS Safety Report 4718469-1 (Version None)
Quarter: 2005Q3

REPORT INFORMATION
  Report Type: 
  Country: None (occurrence: None)
  Receive Date: 20050719
  Receipt Date: 20050201
  Transmission Date: 20060218
  Serious: Yes (Other)
  Sender: FDA-Public Use
  Company Number: 2005024700

PATIENT
  Age: 38 Year
  Sex: Male

DRUGS (2)
  1. CELEBREX [Suspect]
     Indication: BACK PAIN
  2. BEXTRA [Suspect]
     Indication: BACK PAIN

REACTIONS (3)
  - FATIGUE [None]
  - FLUSHING [None]
  - HYPERTENSION [None]
